FAERS Safety Report 21779439 (Version 1)
Quarter: 2022Q4

REPORT INFORMATION
  Report Type: Spontaneous
  Country: KR (occurrence: KR)
  Receive Date: 20221226
  Receipt Date: 20221226
  Transmission Date: 20230112
  Serious: Yes (Other)
  Sender: FDA-Public Use
  Company Number: KR-AMGEN-KORSP2022220192

PATIENT
  Sex: Female

DRUGS (1)
  1. PROLIA [Suspect]
     Active Substance: DENOSUMAB
     Indication: Osteoporosis
     Dosage: 60 MILLIGRAM TO BE 6 MONTHLY, BUT RECEIVED IN A WEEK
     Route: 058
     Dates: start: 20221209

REACTIONS (4)
  - Delirium [Unknown]
  - Accidental overdose [Unknown]
  - Product administration error [Unknown]
  - Pain [Unknown]

NARRATIVE: CASE EVENT DATE: 20221201
